FAERS Safety Report 10289504 (Version 1)
Quarter: 2014Q3

REPORT INFORMATION
  Report Type: Report from Study
  Country: US (occurrence: US)
  Receive Date: 20140710
  Receipt Date: 20140710
  Transmission Date: 20150326
  Serious: Yes (Hospitalization)
  Sender: FDA-Public Use
  Company Number: US-ROCHE-1432073

PATIENT
  Sex: Female
  Weight: 93.07 kg

DRUGS (32)
  1. AFRIN (UNITED STATES) [Concomitant]
     Route: 065
  2. TRIAMCINOLONE ACETONIDE. [Concomitant]
     Active Substance: TRIAMCINOLONE ACETONIDE
     Dosage: 55 MCG/ACT
     Route: 065
  3. JUNEL [Concomitant]
     Active Substance: ETHINYL ESTRADIOL\NORETHINDRONE ACETATE
     Dosage: 1-20 MG-MCG
     Route: 065
  4. BEPREVE [Concomitant]
     Active Substance: BEPOTASTINE\BEPOTASTINE BESILATE
     Route: 065
  5. ALBUTEROL SULFATE. [Concomitant]
     Active Substance: ALBUTEROL SULFATE
     Dosage: 2.5 MG/3ML
     Route: 065
  6. ZYRTEC [Concomitant]
     Active Substance: CETIRIZINE HYDROCHLORIDE
     Route: 065
  7. PROVENTIL HFA [Concomitant]
     Active Substance: ALBUTEROL SULFATE
     Route: 065
  8. XOLAIR [Suspect]
     Active Substance: OMALIZUMAB
     Indication: ASTHMA
     Route: 058
     Dates: start: 201108
  9. XARELTO [Concomitant]
     Active Substance: RIVAROXABAN
     Route: 065
  10. PREDNISONE. [Concomitant]
     Active Substance: PREDNISONE
     Route: 065
  11. PREDNISONE. [Concomitant]
     Active Substance: PREDNISONE
     Route: 065
  12. XOLAIR [Suspect]
     Active Substance: OMALIZUMAB
     Route: 058
     Dates: start: 20140128
  13. NAPROXEN. [Suspect]
     Active Substance: NAPROXEN
     Indication: PRODUCT USED FOR UNKNOWN INDICATION
     Route: 065
  14. PROAIR HFA [Concomitant]
     Active Substance: ALBUTEROL SULFATE
     Dosage: 108 MCG/ACT
     Route: 065
  15. DIFLUCAN [Concomitant]
     Active Substance: FLUCONAZOLE
     Route: 065
  16. DEXILANT [Concomitant]
     Active Substance: DEXLANSOPRAZOLE
     Route: 065
  17. ASPIRIN. [Concomitant]
     Active Substance: ASPIRIN
  18. NASACORT AQ [Concomitant]
     Active Substance: TRIAMCINOLONE ACETONIDE
     Route: 065
  19. MOMETASONE FUROATE. [Concomitant]
     Active Substance: MOMETASONE FUROATE
     Route: 065
  20. PATANASE [Concomitant]
     Active Substance: OLOPATADINE HYDROCHLORIDE
     Route: 065
  21. DOXYCYCLINE. [Concomitant]
     Active Substance: DOXYCYCLINE
     Route: 065
  22. SINGULAIR [Concomitant]
     Active Substance: MONTELUKAST SODIUM
     Route: 065
  23. LEVOCETIRIZINE HYDROCHLORIDE [Concomitant]
     Route: 065
  24. ZOFRAN [Concomitant]
     Active Substance: ONDANSETRON HYDROCHLORIDE
  25. PREDNISONE. [Concomitant]
     Active Substance: PREDNISONE
     Route: 065
  26. MONTELUKAST SODIUM. [Concomitant]
     Active Substance: MONTELUKAST SODIUM
     Route: 065
  27. BUDESONIDE. [Concomitant]
     Active Substance: BUDESONIDE
     Dosage: 0.5 MG/2ML
     Route: 065
  28. CLOTRIMAZOLE. [Concomitant]
     Active Substance: CLOTRIMAZOLE
     Route: 065
  29. DULERA [Concomitant]
     Active Substance: FORMOTEROL FUMARATE DIHYDRATE\MOMETASONE FUROATE
     Dosage: 200-5 MCG/ACT
     Route: 065
  30. TRAMADOL HCL [Concomitant]
     Active Substance: TRAMADOL HYDROCHLORIDE
     Route: 065
  31. CARAFATE [Concomitant]
     Active Substance: SUCRALFATE
     Dosage: 1 GM/10 ML
     Route: 065
  32. PULMICORT TURBUHALER [Concomitant]
     Active Substance: BUDESONIDE
     Dosage: 0.5 MG/2 ML
     Route: 065

REACTIONS (14)
  - Bronchitis [Unknown]
  - Adrenal insufficiency [Unknown]
  - Oedema [Unknown]
  - Migraine [Unknown]
  - Cushingoid [Unknown]
  - Nephrolithiasis [Unknown]
  - Weight increased [Unknown]
  - H1N1 influenza [Unknown]
  - Asthma [Unknown]
  - Arthritis [Unknown]
  - Pneumonia [Unknown]
  - Sinusitis [Unknown]
  - Upper respiratory tract infection [Unknown]
  - Status asthmaticus [Unknown]

NARRATIVE: CASE EVENT DATE: 2012
